FAERS Safety Report 11096409 (Version 1)
Quarter: 2015Q2

REPORT INFORMATION
  Report Type: Spontaneous
  Country: US (occurrence: None)
  Receive Date: 20150505
  Receipt Date: 20150505
  Transmission Date: 20150821
  Serious: Yes (Hospitalization)
  Sender: FDA-Public Use
  Company Number: 2847754

PATIENT
  Age: 66 Year
  Sex: Female
  Weight: 59.1 kg

DRUGS (3)
  1. INVESTIGATIONAL DRUG [Concomitant]
     Active Substance: INVESTIGATIONAL PRODUCT
  2. ABRAXANE [Concomitant]
     Active Substance: PACLITAXEL
  3. GEMCITABINE [Suspect]
     Active Substance: GEMCITABINE\GEMCITABINE HYDROCHLORIDE
     Indication: PRODUCT USED FOR UNKNOWN INDICATION
     Dates: start: 20141007, end: 20150324

REACTIONS (1)
  - Bile duct obstruction [None]

NARRATIVE: CASE EVENT DATE: 20150324
